FAERS Safety Report 7319075-5 (Version None)
Quarter: 2011Q1

REPORT INFORMATION
  Report Type: 
  Country: None (occurrence: None)
  Receive Date: 20110214
  Receipt Date: 20110201
  Transmission Date: 20110831
  Serious: Yes (Hospitalization)
  Sender: FDA-Public Use
  Company Number: LEO-2011-00144

PATIENT
  Age: 53 Year
  Sex: Female
  Weight: 87 kg

DRUGS (10)
  1. VERAPAMIL (VERAPAMIL) (120 MILLIGRAM) [Concomitant]
  2. TACLONEX [Suspect]
     Indication: PSORIASIS
     Dosage: TOPICAL
     Route: 061
     Dates: start: 20100726
  3. DAIVOBET GEL (BETAMETHASONE DIPROPIONATE, CALCIPOTRIOL) (50 MICROGRAM) [Concomitant]
  4. KARDEGIC (ACETYLSALICYLATE LYSINE) (75 MILLIGRAM) [Concomitant]
  5. PLAVIX [Concomitant]
  6. TAHOR (ATORVASTATIN CALCIUM) (40 MILLIGRAM) [Concomitant]
  7. BI PRETERAX (INDAPAMIDE, PERINDOPRIL ERBUMINE) (5 MILLIGRAM) [Concomitant]
  8. PSORIANE (CREAM) [Concomitant]
  9. NICORANDIL (NICORANDIL) (10 MILLIGRAM) [Concomitant]
  10. DIPROSONE [Concomitant]

REACTIONS (5)
  - ERYTHRODERMIC PSORIASIS [None]
  - ALANINE AMINOTRANSFERASE INCREASED [None]
  - CONDITION AGGRAVATED [None]
  - NEUTROPHIL COUNT INCREASED [None]
  - BURNING SENSATION [None]
